FAERS Safety Report 8216951-6 (Version None)
Quarter: 2012Q1

REPORT INFORMATION
  Report Type: 
  Country: None (occurrence: None)
  Receive Date: 20120319
  Receipt Date: 20120305
  Transmission Date: 20120608
  Serious: Yes (Hospitalization)
  Sender: FDA-Public Use
  Company Number: GB-BRISTOL-MYERS SQUIBB COMPANY-16459489

PATIENT
  Age: 34 Year
  Sex: Female

DRUGS (2)
  1. INSULIN [Suspect]
     Indication: GLUCOSE TOLERANCE IMPAIRED IN PREGNANCY
  2. METFORMIN HCL [Suspect]
     Indication: GLUCOSE TOLERANCE IMPAIRED IN PREGNANCY

REACTIONS (2)
  - PREMATURE SEPARATION OF PLACENTA [None]
  - PREGNANCY [None]
